FAERS Safety Report 6729822-9 (Version None)
Quarter: 2010Q2

REPORT INFORMATION
  Report Type: 
  Country: None (occurrence: None)
  Receive Date: 20100518
  Receipt Date: 20100507
  Transmission Date: 20101027
  Serious: Yes (Other)
  Sender: FDA-Public Use
  Company Number: US-PFIZER INC-2010058178

PATIENT
  Sex: Male
  Weight: 99.773 kg

DRUGS (5)
  1. DETROL LA [Suspect]
     Indication: MICTURITION URGENCY
     Dosage: 4 MG, 2X/DAY
     Route: 048
     Dates: end: 20100420
  2. DETROL LA [Suspect]
     Indication: POLLAKIURIA
  3. ZANAFLEX [Concomitant]
     Dosage: UNK
  4. BACLOFEN [Concomitant]
     Dosage: 4 MG, UNK
  5. INTERFERON BETA-1A [Concomitant]
     Dosage: ONCE A WEEK

REACTIONS (3)
  - BLOOD CHOLESTEROL INCREASED [None]
  - INCORRECT DOSE ADMINISTERED [None]
  - URINARY INCONTINENCE [None]
